FAERS Safety Report 4292671-8 (Version None)
Quarter: 2004Q1

REPORT INFORMATION
  Report Type: 
  Country: None (occurrence: None)
  Receive Date: 20040126
  Receipt Date: 20031003
  Transmission Date: 20041129
  Serious: No
  Sender: FDA-Public Use
  Company Number: USA031049046

PATIENT
  Age: 64 Year
  Sex: Female

DRUGS (3)
  1. FORTEO [Suspect]
     Indication: OSTEOPOROSIS
     Dates: start: 20030929
  2. ACIPHEX [Concomitant]
  3. TOPROL-XL [Concomitant]

REACTIONS (2)
  - ERYTHEMA [None]
  - FLUSHING [None]
